FAERS Safety Report 7215366-7 (Version None)
Quarter: 2011Q1

REPORT INFORMATION
  Report Type: 
  Country: None (occurrence: None)
  Receive Date: 20110107
  Receipt Date: 20110103
  Transmission Date: 20110831
  Serious: Yes (Other)
  Sender: FDA-Public Use
  Company Number: US-ABBOTT-11P-163-0695040-00

PATIENT
  Sex: Female
  Weight: 77.18 kg

DRUGS (15)
  1. HUMIRA [Suspect]
     Indication: PSORIATIC ARTHROPATHY
     Dates: start: 20061117, end: 20080101
  2. PAXIL [Concomitant]
     Indication: DEPRESSION
  3. AVAPRO [Concomitant]
     Indication: HYPERTENSION
  4. CRESTOR [Concomitant]
     Indication: BLOOD CHOLESTEROL INCREASED
  5. MOBIC [Concomitant]
     Indication: PSORIATIC ARTHROPATHY
  6. FISH OIL [Concomitant]
     Indication: SUPPLEMENTATION THERAPY
  7. MULTIVITAMIN [Concomitant]
     Indication: VITAMIN SUPPLEMENTATION
  8. HUMIRA [Suspect]
     Dates: start: 20080101
  9. METHOTREXATE [Concomitant]
     Indication: PSORIATIC ARTHROPATHY
  10. HYDROCODONE [Concomitant]
     Indication: PAIN
  11. ADVIL [Concomitant]
     Indication: PAIN
  12. PREDNISONE [Concomitant]
     Indication: PSORIATIC ARTHROPATHY
  13. RANTIDINE [Concomitant]
     Indication: GASTROOESOPHAGEAL REFLUX DISEASE
  14. ATENOLOL [Concomitant]
     Indication: ATRIAL TACHYCARDIA
  15. ASPIRIN [Concomitant]
     Indication: PAIN

REACTIONS (5)
  - NASOPHARYNGITIS [None]
  - MENISCUS LESION [None]
  - EYELID DISORDER [None]
  - CATARACT [None]
  - DRY MOUTH [None]
